FAERS Safety Report 17888884 (Version 1)
Quarter: 2020Q2

REPORT INFORMATION
  Report Type: Spontaneous
  Country: US (occurrence: US)
  Receive Date: 20200612
  Receipt Date: 20200612
  Transmission Date: 20200714
  Serious: No
  Sender: FDA-Public Use
  Company Number: US-TEVA-2020-US-1246785

PATIENT
  Age: 49 Year
  Sex: Male

DRUGS (2)
  1. QVAR REDIHALER [Suspect]
     Active Substance: BECLOMETHASONE DIPROPIONATE
     Indication: ASTHMA
     Route: 055
     Dates: start: 2018
  2. UNSPECIFIED ALBUTEROL INHALER [Concomitant]
     Indication: ASTHMA
     Route: 055

REACTIONS (5)
  - Wrong technique in device usage process [Unknown]
  - Asthma [Unknown]
  - Wheezing [Unknown]
  - Product taste abnormal [Unknown]
  - Device delivery system issue [Unknown]

NARRATIVE: CASE EVENT DATE: 2020
